FAERS Safety Report 12205685 (Version 4)
Quarter: 2016Q2

REPORT INFORMATION
  Report Type: Spontaneous
  Country: JP (occurrence: JP)
  Receive Date: 20160323
  Receipt Date: 20160518
  Transmission Date: 20160815
  Serious: Yes (Hospitalization, Other)
  Sender: FDA-Public Use
  Company Number: JP-GILEAD-2016-0204133

PATIENT
  Age: 44 Year
  Sex: Female
  Weight: 81 kg

DRUGS (4)
  1. HARVONI [Suspect]
     Active Substance: LEDIPASVIR\SOFOSBUVIR
     Indication: CHRONIC HEPATITIS C
     Dosage: 1 DF, UNK
     Route: 048
     Dates: start: 20160109, end: 20160312
  2. TIZANIDINE. [Concomitant]
     Active Substance: TIZANIDINE
     Indication: MIGRAINE
     Dosage: 1 MG, UNK
     Route: 048
     Dates: start: 20160224, end: 20160225
  3. LOXONIN [Concomitant]
     Active Substance: LOXOPROFEN SODIUM
     Indication: MIGRAINE
     Dosage: 60 MG, UNK
     Route: 048
     Dates: start: 20160224, end: 20160225
  4. ALESION [Concomitant]
     Active Substance: EPINASTINE HYDROCHLORIDE
     Dosage: 20 MG, UNK
     Route: 048
     Dates: start: 20160303, end: 20160304

REACTIONS (3)
  - Migraine [Unknown]
  - Hepatitis B DNA increased [Recovering/Resolving]
  - Hepatic function abnormal [Recovering/Resolving]

NARRATIVE: CASE EVENT DATE: 20160304
